FAERS Safety Report 20650850 (Version 2)
Quarter: 2022Q2

REPORT INFORMATION
  Report Type: Spontaneous
  Country: JP (occurrence: JP)
  Receive Date: 20220329
  Receipt Date: 20220407
  Transmission Date: 20220720
  Serious: Yes (Hospitalization)
  Sender: FDA-Public Use
  Company Number: JP-TEVA-2022-JP-2021464

PATIENT
  Age: 81 Year
  Sex: Male

DRUGS (4)
  1. HEPARIN [Suspect]
     Active Substance: HEPARIN SODIUM
     Indication: Atrial fibrillation
     Dosage: DAY 4 TO 11
     Route: 065
  2. PREDNISOLONE [Suspect]
     Active Substance: PREDNISOLONE
     Indication: Steroid therapy
     Dosage: INITIATED AT A DOSE OF 20 AND THEN TAPERED
     Route: 065
  3. METHYLPREDNISOLONE [Suspect]
     Active Substance: METHYLPREDNISOLONE
     Indication: Steroid therapy
     Route: 065
  4. DABIGATRAN [Concomitant]
     Active Substance: DABIGATRAN
     Indication: Atrial fibrillation
     Dosage: 220 MILLIGRAM DAILY;
     Route: 065

REACTIONS (5)
  - Heparin-induced thrombocytopenia [Recovered/Resolved]
  - Hypercoagulation [Recovered/Resolved]
  - Intracardiac thrombus [Recovered/Resolved]
  - Pulmonary thrombosis [Recovered/Resolved]
  - Arterial thrombosis [Recovered/Resolved]
